FAERS Safety Report 12581263 (Version 3)
Quarter: 2016Q3

REPORT INFORMATION
  Report Type: Spontaneous
  Country: JP (occurrence: JP)
  Receive Date: 20160721
  Receipt Date: 20160927
  Transmission Date: 20161109
  Serious: Yes (Hospitalization, Other)
  Sender: FDA-Public Use
  Company Number: JP-GILEAD-2016-0223940

PATIENT
  Age: 57 Year
  Sex: Female

DRUGS (3)
  1. ZEFIX [Suspect]
     Active Substance: LAMIVUDINE
     Indication: CHRONIC HEPATITIS B
     Dosage: UNK
     Route: 048
     Dates: start: 1998, end: 2007
  2. HEPSERA [Suspect]
     Active Substance: ADEFOVIR DIPIVOXIL
     Indication: CHRONIC HEPATITIS B
     Dosage: UNK
     Route: 048
     Dates: start: 2007
  3. HEPSERA [Suspect]
     Active Substance: ADEFOVIR DIPIVOXIL
     Dosage: 10 MG, QOD
     Route: 048
     Dates: end: 20160210

REACTIONS (9)
  - Osteoporosis [Unknown]
  - Renal impairment [Unknown]
  - Arthralgia [Recovered/Resolved]
  - Drug resistance [Unknown]
  - Bone pain [Recovering/Resolving]
  - Femoral neck fracture [Unknown]
  - Fanconi syndrome acquired [Recovering/Resolving]
  - Osteomalacia [Unknown]
  - Metabolic acidosis [Unknown]

NARRATIVE: CASE EVENT DATE: 2007
